FAERS Safety Report 5781935-4 (Version None)
Quarter: 2008Q2

REPORT INFORMATION
  Report Type: 
  Country: None (occurrence: None)
  Receive Date: 20080623
  Receipt Date: 20080617
  Transmission Date: 20081010
  Serious: Yes (Hospitalization)
  Sender: FDA-Public Use
  Company Number: B0525249A

PATIENT
  Age: 82 Year
  Sex: Male

DRUGS (5)
  1. AUGMENTIN '125' [Suspect]
     Route: 065
     Dates: start: 20080323, end: 20080404
  2. PRIMPERAN TAB [Suspect]
     Route: 065
     Dates: start: 20080401, end: 20080404
  3. FLAGYL [Suspect]
     Route: 065
     Dates: start: 20080323, end: 20080404
  4. AMIKACIN [Concomitant]
     Route: 065
     Dates: start: 20080101
  5. OCTAGAM [Concomitant]
     Indication: IDIOPATHIC THROMBOCYTOPENIC PURPURA
     Route: 065

REACTIONS (3)
  - BONE MARROW FAILURE [None]
  - CONDITION AGGRAVATED [None]
  - HAEMATOLOGY TEST ABNORMAL [None]
